FAERS Safety Report 7503732-1 (Version None)
Quarter: 2011Q2

REPORT INFORMATION
  Report Type: 
  Country: None (occurrence: None)
  Receive Date: 20110525
  Receipt Date: 20110516
  Transmission Date: 20111010
  Serious: Yes (Hospitalization, Other)
  Sender: FDA-Public Use
  Company Number: PHHY2011IN43272

PATIENT
  Age: 51 Year
  Sex: Female

DRUGS (4)
  1. TACROLIMUS [Suspect]
     Indication: IMMUNOSUPPRESSION
     Dosage: UNK
  2. MYCOPHENOLATE MOFETIL [Concomitant]
     Indication: IMMUNOSUPPRESSION
     Dosage: UNK
  3. TIGECYCLINE [Interacting]
     Dosage: UNK
  4. PREDNISOLONE [Concomitant]
     Indication: IMMUNOSUPPRESSION
     Dosage: UNK

REACTIONS (4)
  - DRUG INTERACTION [None]
  - SEPTIC SHOCK [None]
  - ESCHERICHIA INFECTION [None]
  - BLOOD CREATININE INCREASED [None]
